FAERS Safety Report 23620591 (Version 1)
Quarter: 2024Q1

REPORT INFORMATION
  Report Type: Spontaneous
  Country: DE (occurrence: None)
  Receive Date: 20240312
  Receipt Date: 20240312
  Transmission Date: 20240409
  Serious: Yes (Other)
  Sender: FDA-Public Use
  Company Number: DE-ROCHE-3493684

PATIENT
  Age: 42 Year
  Sex: Female

DRUGS (2)
  1. OCREVUS [Suspect]
     Active Substance: OCRELIZUMAB
     Indication: Relapsing multiple sclerosis
     Route: 042
     Dates: start: 201805
  2. OCREVUS [Suspect]
     Active Substance: OCRELIZUMAB
     Dosage: SEMI ANNUALLY
     Route: 042
     Dates: start: 202303

REACTIONS (6)
  - Cardiovascular disorder [Unknown]
  - Presyncope [Not Recovered/Not Resolved]
  - Extrasystoles [Not Recovered/Not Resolved]
  - Palpitations [Not Recovered/Not Resolved]
  - Off label use [Unknown]
  - Migraine [Unknown]
